APPROVED DRUG PRODUCT: LO-ZUMANDIMINE
Active Ingredient: DROSPIRENONE; ETHINYL ESTRADIOL
Strength: 3MG;0.02MG
Dosage Form/Route: TABLET;ORAL
Application: A209632 | Product #001 | TE Code: AB
Applicant: AUROBINDO PHARMA LTD
Approved: Feb 27, 2018 | RLD: No | RS: No | Type: RX